FAERS Safety Report 10903317 (Version 1)
Quarter: 2015Q1

REPORT INFORMATION
  Report Type: Spontaneous
  Country: US (occurrence: None)
  Receive Date: 20150304
  Receipt Date: 20150304
  Transmission Date: 20150721
  Serious: Yes (Death, Hospitalization)
  Sender: FDA-Public Use
  Company Number: INS201502-000063

PATIENT
  Sex: Male

DRUGS (4)
  1. SUBSYS [Suspect]
     Active Substance: FENTANYL
     Indication: BREAKTHROUGH PAIN
  2. OXYCONTN [Concomitant]
  3. OXYCODONE [Concomitant]
     Active Substance: OXYCODONE
  4. ACTIQ (FENTANYL) [Concomitant]

REACTIONS (2)
  - Plasma cell myeloma [None]
  - Metastases to bone [None]
